FAERS Safety Report 5751025-5 (Version None)
Quarter: 2008Q2

REPORT INFORMATION
  Report Type: 
  Country: None (occurrence: None)
  Receive Date: 20080528
  Receipt Date: 20080519
  Transmission Date: 20081010
  Serious: Yes (Other)
  Sender: FDA-Public Use
  Company Number: US-KINGPHARMUSA00001-K200800473

PATIENT
  Sex: Female

DRUGS (1)
  1. SKELAXIN [Suspect]
     Indication: BACK DISORDER
     Dosage: 800 MG, TID
     Route: 048
     Dates: start: 20050101

REACTIONS (2)
  - GLOMERULAR FILTRATION RATE ABNORMAL [None]
  - RENAL FAILURE [None]
